FAERS Safety Report 7189582-7 (Version None)
Quarter: 2010Q4

REPORT INFORMATION
  Report Type: 
  Country: None (occurrence: None)
  Receive Date: 20101223
  Receipt Date: 20101214
  Transmission Date: 20110411
  Serious: No
  Sender: FDA-Public Use
  Company Number: US-BIOGENIDEC-2010BI025254

PATIENT
  Sex: Female

DRUGS (2)
  1. TYSABRI [Suspect]
     Indication: MULTIPLE SCLEROSIS
     Route: 042
     Dates: start: 20100402
  2. BENADRYL [Concomitant]
     Indication: PREMEDICATION

REACTIONS (5)
  - DIZZINESS [None]
  - HEADACHE [None]
  - INSOMNIA [None]
  - NASOPHARYNGITIS [None]
  - PRURITUS [None]
